FAERS Safety Report 10507952 (Version 5)
Quarter: 2014Q4

REPORT INFORMATION
  Report Type: Spontaneous
  Country: JP (occurrence: JP)
  Receive Date: 20141009
  Receipt Date: 20141111
  Transmission Date: 20150528
  Serious: Yes (Other)
  Sender: FDA-Public Use
  Company Number: PHHY2014JP116224

PATIENT
  Age: 17 Year
  Sex: Male
  Weight: 51 kg

DRUGS (12)
  1. CLOZARIL [Suspect]
     Active Substance: CLOZAPINE
     Dosage: 25 MG, DAILY
     Route: 048
     Dates: start: 20140912, end: 20140917
  2. CLOZARIL [Suspect]
     Active Substance: CLOZAPINE
     Dosage: 50 MG, DAILY
     Route: 048
     Dates: start: 20140919
  3. RISPERDAL [Suspect]
     Active Substance: RISPERIDONE
     Dosage: 6 MG, DAILY
     Route: 048
     Dates: start: 20140825
  4. CLOZARIL [Suspect]
     Active Substance: CLOZAPINE
     Indication: SCHIZOPHRENIA
     Dosage: 12.5 MG, DAILY
     Route: 048
     Dates: start: 20140825, end: 20140825
  5. RISPERDAL [Suspect]
     Active Substance: RISPERIDONE
     Indication: SCHIZOPHRENIA
     Dosage: 12 MG, DAILY
     Route: 048
     Dates: start: 20140804, end: 20140806
  6. RISPERDAL [Suspect]
     Active Substance: RISPERIDONE
     Dosage: 2 MG, DAILY
     Route: 048
     Dates: start: 20140818, end: 20140823
  7. RISPERDAL [Suspect]
     Active Substance: RISPERIDONE
     Dosage: 4 MG, DAILY
     Route: 048
     Dates: start: 20140814, end: 20140817
  8. RISPERDAL [Suspect]
     Active Substance: RISPERIDONE
     Dosage: 4 MG, DAILY
     Route: 048
     Dates: start: 20140824, end: 20140824
  9. ROHYPNOL [Concomitant]
     Active Substance: FLUNITRAZEPAM
     Indication: PRODUCT USED FOR UNKNOWN INDICATION
     Dosage: 0.5 MG
     Route: 048
     Dates: start: 20140804, end: 20140921
  10. RISPERDAL [Suspect]
     Active Substance: RISPERIDONE
     Dosage: 8 MG, DAILY
     Route: 048
     Dates: start: 20140807, end: 20140813
  11. LIMAS [Concomitant]
     Active Substance: LITHIUM CARBONATE
     Indication: PRODUCT USED FOR UNKNOWN INDICATION
     Dosage: 200 MG
     Route: 048
     Dates: start: 20140820, end: 20140921
  12. CLOZARIL [Suspect]
     Active Substance: CLOZAPINE
     Dosage: 12.5 MG, DAILY
     Route: 048
     Dates: start: 20140908, end: 20140911

REACTIONS (9)
  - Blood creatine phosphokinase increased [Recovered/Resolved]
  - Schizophrenia [Unknown]
  - C-reactive protein increased [Unknown]
  - Lymphocyte percentage increased [Unknown]
  - Pyrexia [Recovered/Resolved]
  - Neutrophil percentage increased [Unknown]
  - Tachycardia [Recovered/Resolved]
  - Bundle branch block right [Unknown]
  - Vomiting [Recovered/Resolved]

NARRATIVE: CASE EVENT DATE: 20140820
